FAERS Safety Report 8065976-2 (Version None)
Quarter: 2012Q1

REPORT INFORMATION
  Report Type: 
  Country: None (occurrence: None)
  Receive Date: 20120117
  Receipt Date: 20120109
  Transmission Date: 20120608
  Serious: Yes (Other)
  Sender: FDA-Public Use
  Company Number: 2012MA000450

PATIENT
  Age: 59 Year
  Sex: Male

DRUGS (2)
  1. FLUOXETINE [Suspect]
     Indication: DYSTHYMIC DISORDER
     Dosage: 20 MG
  2. FLUOXETINE HCL [Concomitant]

REACTIONS (2)
  - PRODUCT SUBSTITUTION ISSUE [None]
  - DRUG INEFFECTIVE [None]
